FAERS Safety Report 4424798-1 (Version None)
Quarter: 2004Q3

REPORT INFORMATION
  Report Type: 
  Country: None (occurrence: None)
  Receive Date: 20040809
  Receipt Date: 20040728
  Transmission Date: 20050211
  Serious: Yes (Death, Life-Threatening)
  Sender: FDA-Public Use
  Company Number: DE-JNJFOC-20040707876

PATIENT
  Age: 78 Year
  Sex: Male

DRUGS (9)
  1. LEVAQUIN [Suspect]
     Indication: PNEUMONIA
     Dosage: 500 MG, INTRAVENOUS
     Route: 042
     Dates: start: 20030727, end: 20030727
  2. LEVOFLOXACIN [Suspect]
     Indication: PNEUMONIA
     Dates: start: 20030728, end: 20030803
  3. LEVAQUIN [Suspect]
     Indication: URINARY TRACT INFECTION
     Dosage: 250 MG
     Dates: start: 20030804, end: 20030818
  4. ATIVAN [Concomitant]
  5. PROTONIX [Concomitant]
  6. PAXIL [Concomitant]
  7. TYLENOL [Concomitant]
  8. SLOW MAG (MAGNESIUM CHLORIDE ANHYDROUS) [Concomitant]
  9. PREVACID [Concomitant]

REACTIONS (7)
  - DEHYDRATION [None]
  - ESCHERICHIA INFECTION [None]
  - GENERAL NUTRITION DISORDER [None]
  - MALNUTRITION [None]
  - PNEUMONIA ASPIRATION [None]
  - PROSTATITIS [None]
  - URINARY TRACT INFECTION [None]
